FAERS Safety Report 23582590 (Version 1)
Quarter: 2024Q1

REPORT INFORMATION
  Report Type: Report from Study
  Country: AR (occurrence: AR)
  Receive Date: 20240229
  Receipt Date: 20240229
  Transmission Date: 20240409
  Serious: Yes (Hospitalization, Other)
  Sender: FDA-Public Use
  Company Number: AR-ABBVIE-5656558

PATIENT
  Age: 69 Year
  Sex: Female

DRUGS (2)
  1. HUMIRA [Suspect]
     Active Substance: ADALIMUMAB
     Indication: Rheumatoid arthritis
     Dosage: FORM STRENGTH: 40 MILLIGRAM
     Route: 058
     Dates: start: 20220729
  2. ACYCLOVIR [Suspect]
     Active Substance: ACYCLOVIR
     Indication: Herpes zoster
     Route: 065

REACTIONS (6)
  - Renal failure [Not Recovered/Not Resolved]
  - Herpes zoster [Not Recovered/Not Resolved]
  - Erysipelas [Recovered/Resolved]
  - Malaise [Unknown]
  - Condition aggravated [Unknown]
  - Pain of skin [Unknown]

NARRATIVE: CASE EVENT DATE: 20240201
